FAERS Safety Report 11925303 (Version 1)
Quarter: 2016Q1

REPORT INFORMATION
  Report Type: Spontaneous
  Country: JP (occurrence: JP)
  Receive Date: 20160118
  Receipt Date: 20160118
  Transmission Date: 20160526
  Serious: Yes (Hospitalization, Other)
  Sender: FDA-Public Use
  Company Number: PHHY2016JP003291

PATIENT
  Age: 20 Year
  Sex: Female
  Weight: 52 kg

DRUGS (1)
  1. ACETYLSALICYLIC ACID [Suspect]
     Active Substance: ASPIRIN
     Indication: PRODUCT USED FOR UNKNOWN INDICATION
     Dosage: UNK
     Route: 048

REACTIONS (6)
  - Suicide attempt [Recovered/Resolved]
  - Asterixis [Unknown]
  - Overdose [Recovered/Resolved]
  - Acute hepatic failure [Recovered/Resolved]
  - Renal failure [Recovered/Resolved]
  - Pancreatitis acute [Recovered/Resolved]
